FAERS Safety Report 7474556-9 (Version None)
Quarter: 2011Q2

REPORT INFORMATION
  Report Type: 
  Country: None (occurrence: None)
  Receive Date: 20110503
  Receipt Date: 20110415
  Transmission Date: 20111010
  Serious: Yes (Other)
  Sender: FDA-Public Use
  Company Number: 2011SP017366

PATIENT
  Age: 71 Year
  Sex: Male

DRUGS (6)
  1. TEMODAL [Suspect]
     Indication: BRAIN NEOPLASM MALIGNANT
     Dosage: 120 MG; QD; PO
     Route: 048
     Dates: start: 20101020, end: 20110331
  2. MUCOSTA [Concomitant]
  3. NORVASC [Concomitant]
  4. MAGNESIUM SULFATE [Concomitant]
  5. RAMELTEON [Concomitant]
  6. LOXONIN /00890702 [Concomitant]

REACTIONS (2)
  - OEDEMA PERIPHERAL [None]
  - RENAL IMPAIRMENT [None]
